FAERS Safety Report 19941228 (Version 2)
Quarter: 2021Q4

REPORT INFORMATION
  Report Type: Spontaneous
  Country: CA (occurrence: CA)
  Receive Date: 20211011
  Receipt Date: 20211124
  Transmission Date: 20220304
  Serious: No
  Sender: FDA-Public Use
  Company Number: CA-PFIZER INC-2021443995

PATIENT
  Age: 12 Year
  Sex: Male

DRUGS (1)
  1. GENOTROPIN [Suspect]
     Active Substance: SOMATROPIN
     Indication: Short stature
     Dosage: 1050 UG, 6X/WEEK
     Route: 058
     Dates: start: 20210413

REACTIONS (3)
  - Device breakage [Unknown]
  - Burning sensation [Unknown]
  - Pain in extremity [Unknown]
